FAERS Safety Report 5386091-2 (Version None)
Quarter: 2007Q3

REPORT INFORMATION
  Report Type: 
  Country: None (occurrence: None)
  Receive Date: 20070710
  Receipt Date: 20070625
  Transmission Date: 20080115
  Serious: Yes (Other)
  Sender: FDA-Public Use
  Company Number: UKP07000125

PATIENT
  Sex: Female

DRUGS (1)
  1. DIDRONEL [Suspect]
     Dosage: 1 TABLET, CYCLIC 1/D, ORAL
     Route: 048
     Dates: start: 20050101

REACTIONS (1)
  - GASTROINTESTINAL CARCINOMA [None]
